FAERS Safety Report 5099938-4 (Version None)
Quarter: 2006Q3

REPORT INFORMATION
  Report Type: 
  Country: None (occurrence: None)
  Receive Date: 20060908
  Receipt Date: 20060620
  Transmission Date: 20061208
  Serious: Yes (Hospitalization)
  Sender: FDA-Public Use
  Company Number: JP-BRISTOL-MYERS SQUIBB COMPANY-13426507

PATIENT
  Age: 46 Year
  Sex: Male

DRUGS (7)
  1. EFAVIRENZ [Suspect]
     Indication: HIV INFECTION
     Route: 048
     Dates: start: 20060530, end: 20060619
  2. VIREAD [Suspect]
     Indication: HIV INFECTION
     Route: 048
     Dates: start: 20060530, end: 20060625
  3. LAMIVUDINE [Suspect]
     Indication: HIV INFECTION
     Route: 048
     Dates: start: 20060530, end: 20060625
  4. FLUCONAZOLE [Concomitant]
     Dates: start: 20060508
  5. OXETHAZAINE [Concomitant]
     Dates: start: 20060327
  6. SULFAMETHOXAZOLE + TRIMETHOPRIM [Concomitant]
     Dates: start: 20060327
  7. TEPRENONE [Concomitant]
     Dates: start: 20060327

REACTIONS (9)
  - ALANINE AMINOTRANSFERASE INCREASED [None]
  - ASPARTATE AMINOTRANSFERASE INCREASED [None]
  - BLOOD ALKALINE PHOSPHATASE INCREASED [None]
  - GAMMA-GLUTAMYLTRANSFERASE INCREASED [None]
  - HEPATIC FUNCTION ABNORMAL [None]
  - HEPATOSPLENOMEGALY [None]
  - LIVER DISORDER [None]
  - LYMPHOMA [None]
  - PYREXIA [None]
